FAERS Safety Report 4962226-8 (Version None)
Quarter: 2006Q1

REPORT INFORMATION
  Report Type: 
  Country: None (occurrence: None)
  Receive Date: 20060329
  Receipt Date: 20060316
  Transmission Date: 20060701
  Serious: Yes (Hospitalization, Other)
  Sender: FDA-Public Use
  Company Number: HQWYE386817MAR06

PATIENT
  Age: 42 Year
  Sex: Female

DRUGS (7)
  1. PANTOPRAZOLE SODIUM [Suspect]
     Indication: GASTROOESOPHAGEAL REFLUX DISEASE
     Dates: end: 20040106
  2. CELEXA [Concomitant]
  3. RANITIDINE [Concomitant]
  4. TRICYCLEN (ETHINYLESTRADIOL/NORGESTIMATE) [Concomitant]
  5. TYLENOL EXTRA STRENGTH (ACETAMINOPHEN) [Concomitant]
  6. IBUPROFEN [Concomitant]
  7. METAMUCIL-2 [Concomitant]

REACTIONS (8)
  - BURNING SENSATION [None]
  - DIZZINESS [None]
  - FEELING ABNORMAL [None]
  - NAUSEA [None]
  - PRURITUS [None]
  - PRURITUS GENERALISED [None]
  - RASH MACULAR [None]
  - VOMITING [None]
